FAERS Safety Report 7369281-9 (Version None)
Quarter: 2011Q1

REPORT INFORMATION
  Report Type: 
  Country: None (occurrence: None)
  Receive Date: 20110323
  Receipt Date: 20110317
  Transmission Date: 20110831
  Serious: Yes (Death, Life-Threatening, Hospitalization, Disabling)
  Sender: FDA-Public Use
  Company Number: A0918672A

PATIENT
  Age: 69 Year
  Sex: Male

DRUGS (8)
  1. PRILOSEC [Concomitant]
  2. FLOMAX [Concomitant]
  3. INSULIN [Concomitant]
  4. LYRICA [Concomitant]
  5. MARINOL [Concomitant]
  6. PREDNISOLONE [Concomitant]
  7. LISINOPRIL [Concomitant]
  8. VOTRIENT [Suspect]
     Dosage: 200MG FOUR TIMES PER DAY
     Route: 048
     Dates: start: 20110310, end: 20110316

REACTIONS (2)
  - METASTATIC RENAL CELL CARCINOMA [None]
  - RENAL CELL CARCINOMA STAGE IV [None]
